FAERS Safety Report 4334095-0 (Version None)
Quarter: 2004Q2

REPORT INFORMATION
  Report Type: 
  Country: None (occurrence: None)
  Receive Date: 20040402
  Receipt Date: 20040323
  Transmission Date: 20050107
  Serious: Yes (Hospitalization)
  Sender: FDA-Public Use
  Company Number: 2004020212

PATIENT
  Sex: Male

DRUGS (2)
  1. EPANUTIN SUSPENSION (PHENYTOIN) (PHENYTOIN SODIUM) [Suspect]
     Indication: EPILEPSY
  2. CALCIUM CARBONATE (CALCIUM CARBONATE) [Concomitant]

REACTIONS (3)
  - DRUG LEVEL DECREASED [None]
  - FALL [None]
  - SPINAL DISORDER [None]
